FAERS Safety Report 13644027 (Version 1)
Quarter: 2017Q2

REPORT INFORMATION
  Report Type: Spontaneous
  Country: US (occurrence: US)
  Receive Date: 20170612
  Receipt Date: 20170612
  Transmission Date: 20170830
  Serious: Yes (Other)
  Sender: FDA-Public Use
  Company Number: US-009507513-1706USA004999

PATIENT
  Age: 50 Year
  Sex: Female

DRUGS (3)
  1. DEXAMETHASONE. [Suspect]
     Active Substance: DEXAMETHASONE
     Indication: METASTATIC GLUCAGONOMA
     Dosage: UNK, QD
     Route: 048
  2. EVEROLIMUS [Suspect]
     Active Substance: EVEROLIMUS
     Indication: METASTATIC GLUCAGONOMA
  3. VATALANIB [Suspect]
     Active Substance: VATALANIB
     Indication: METASTATIC GLUCAGONOMA

REACTIONS (1)
  - Postoperative wound infection [Unknown]
